FAERS Safety Report 19923075 (Version 1)
Quarter: 2021Q4

REPORT INFORMATION
  Report Type: Spontaneous
  Country: US (occurrence: US)
  Receive Date: 20211005
  Receipt Date: 20211005
  Transmission Date: 20220303
  Serious: No
  Sender: FDA-Public Use
  Company Number: None

PATIENT
  Age: 66 Year
  Sex: Female
  Weight: 59.4 kg

DRUGS (5)
  1. CYCLOPHOSPHAMIDE [Suspect]
     Active Substance: CYCLOPHOSPHAMIDE
     Dates: end: 20210806
  2. DOXORUBICIN HYDROCHLORIDE [Suspect]
     Active Substance: DOXORUBICIN HYDROCHLORIDE
     Dates: end: 20210806
  3. PREDNISONE [Suspect]
     Active Substance: PREDNISONE
     Dates: end: 20210810
  4. RITUXIMAB [Suspect]
     Active Substance: RITUXIMAB
     Dates: end: 20210806
  5. VINCRISTINE SULFATE [Suspect]
     Active Substance: VINCRISTINE SULFATE
     Dates: end: 20210806

REACTIONS (4)
  - Neuropathy peripheral [None]
  - Loss of personal independence in daily activities [None]
  - Grip strength decreased [None]
  - Neuropathy peripheral [None]

NARRATIVE: CASE EVENT DATE: 20210826
